FAERS Safety Report 9627117 (Version 1)
Quarter: 2013Q4

REPORT INFORMATION
  Report Type: Spontaneous
  Country: FR (occurrence: FR)
  Receive Date: 20131016
  Receipt Date: 20131016
  Transmission Date: 20140711
  Serious: Yes (Hospitalization, Other)
  Sender: FDA-Public Use
  Company Number: FR-WATSON-2013-17946

PATIENT
  Age: 31 Year
  Sex: Female
  Weight: 56 kg

DRUGS (1)
  1. TRELSTAR (UNKNOWN) [Suspect]
     Indication: IN VITRO FERTILISATION
     Dosage: 1 INJECTION
     Route: 051

REACTIONS (2)
  - Endometriosis [Unknown]
  - Gastrointestinal obstruction [Unknown]
